FAERS Safety Report 10896665 (Version 1)
Quarter: 2015Q1

REPORT INFORMATION
  Report Type: Spontaneous
  Country: US (occurrence: None)
  Receive Date: 20150302
  Receipt Date: 20150302
  Transmission Date: 20150721
  Serious: No
  Sender: FDA-Public Use
  Company Number: None

PATIENT
  Age: 25 Year
  Sex: Female
  Weight: 60 kg

DRUGS (3)
  1. VITAMIN B COMPLEX [Concomitant]
     Active Substance: CYANOCOBALAMIN\DEXPANTHENOL\NIACINAMIDE\PYRIDOXINE HYDROCHLORIDE\RIBOFLAVIN 5^-PHOSPHATE SODIUM\THIAMINE HYDROCHLORIDE\VITAMIN B COMPLEX
  2. FOLLIC ACID [Concomitant]
  3. NIMSULIDE [Suspect]
     Active Substance: NIMESULIDE
     Indication: PAIN MANAGEMENT
     Route: 048
     Dates: start: 20150301, end: 20150302

REACTIONS (3)
  - Haematochezia [None]
  - Faeces discoloured [None]
  - Gastric ulcer [None]

NARRATIVE: CASE EVENT DATE: 20150302
